FAERS Safety Report 18404030 (Version 2)
Quarter: 2020Q4

REPORT INFORMATION
  Report Type: Spontaneous
  Country: US (occurrence: US)
  Receive Date: 20201020
  Receipt Date: 20201126
  Transmission Date: 20210114
  Serious: No
  Sender: FDA-Public Use
  Company Number: US-GLAXOSMITHKLINE-US2020AMR208118

PATIENT
  Sex: Female

DRUGS (3)
  1. ZEJULA [Suspect]
     Active Substance: NIRAPARIB
     Indication: MALIGNANT PERITONEAL NEOPLASM
     Dosage: 200 MG, QD
     Route: 048
     Dates: start: 20201001
  2. ZEJULA [Suspect]
     Active Substance: NIRAPARIB
     Dosage: 1 DF (CAPSULE)
     Dates: start: 20201119
  3. ZEJULA [Suspect]
     Active Substance: NIRAPARIB
     Dosage: 200 MG, QD

REACTIONS (9)
  - Red blood cell count decreased [Unknown]
  - Anaemia [Unknown]
  - Sinusitis [Unknown]
  - Dyspnoea [Unknown]
  - Ear discomfort [Unknown]
  - Feeling abnormal [Unknown]
  - Hypersensitivity [Unknown]
  - Nausea [Unknown]
  - Fatigue [Unknown]
